FAERS Safety Report 6762541-1 (Version None)
Quarter: 2010Q2

REPORT INFORMATION
  Report Type: 
  Country: None (occurrence: None)
  Receive Date: 20100609
  Receipt Date: 20100601
  Transmission Date: 20101027
  Serious: Yes (Other)
  Sender: FDA-Public Use
  Company Number: GB-TEVA-236545ISR

PATIENT
  Age: 62 Year
  Sex: Female
  Weight: 85 kg

DRUGS (1)
  1. DOXYCYCLINE [Suspect]
     Indication: OTITIS MEDIA
     Route: 048
     Dates: start: 20100323, end: 20100406

REACTIONS (1)
  - TINNITUS [None]
